FAERS Safety Report 6210266-3 (Version None)
Quarter: 2009Q2

REPORT INFORMATION
  Report Type: 
  Country: None (occurrence: None)
  Receive Date: 20090601
  Receipt Date: 20090521
  Transmission Date: 20091009
  Serious: Yes (Other)
  Sender: FDA-Public Use
  Company Number: US-AMGEN-US348115

PATIENT
  Sex: Female
  Weight: 59.6 kg

DRUGS (3)
  1. ENBREL [Suspect]
     Indication: JUVENILE ARTHRITIS
     Route: 058
     Dates: start: 20090220
  2. MELOXICAM [Concomitant]
     Route: 048
     Dates: start: 20080601
  3. METHOTREXATE [Concomitant]
     Route: 058
     Dates: start: 20080801

REACTIONS (3)
  - ATAXIA [None]
  - SYNCOPE [None]
  - VISUAL IMPAIRMENT [None]
